FAERS Safety Report 11701523 (Version 1)
Quarter: 2015Q4

REPORT INFORMATION
  Report Type: Spontaneous
  Country: DE (occurrence: DE)
  Receive Date: 20151105
  Receipt Date: 20151105
  Transmission Date: 20160304
  Serious: Yes (Other)
  Sender: FDA-Public Use
  Company Number: DE-PFIZER INC-2015370971

PATIENT
  Age: 64 Year
  Sex: Female

DRUGS (4)
  1. GABAPENTIN. [Suspect]
     Active Substance: GABAPENTIN
     Indication: PAIN
  2. GABAPENTIN. [Suspect]
     Active Substance: GABAPENTIN
     Indication: BACK DISORDER
     Dosage: 400 MG, 2X/DAY
  3. TARGIN [Suspect]
     Active Substance: NALOXONE HYDROCHLORIDE\OXYCODONE HYDROCHLORIDE
     Indication: PAIN
     Dosage: 10 MG, 3X/DAY
     Dates: start: 201509
  4. TARGIN [Suspect]
     Active Substance: NALOXONE HYDROCHLORIDE\OXYCODONE HYDROCHLORIDE
     Indication: BACK DISORDER
     Dosage: 15 MG DAILY, 10 MG IN THE MORNING, 5 MG IN THE EVENING

REACTIONS (6)
  - Asthma [Unknown]
  - Feeling abnormal [Unknown]
  - Headache [Unknown]
  - Circulatory collapse [Unknown]
  - Tachycardia [Unknown]
  - Chest pain [Unknown]

NARRATIVE: CASE EVENT DATE: 201509
